FAERS Safety Report 6369930-8 (Version None)
Quarter: 2009Q3

REPORT INFORMATION
  Report Type: 
  Country: None (occurrence: None)
  Receive Date: 20090923
  Receipt Date: 20071219
  Transmission Date: 20100115
  Serious: Yes (Hospitalization)
  Sender: FDA-Public Use
  Company Number: US-ASTRAZENECA-2006UW10740

PATIENT
  Age: 45 Year
  Sex: Male
  Weight: 117 kg

DRUGS (19)
  1. SEROQUEL [Suspect]
     Indication: INSOMNIA
     Dosage: 100-200 MG
     Route: 048
     Dates: start: 19970101
  2. SEROQUEL [Suspect]
     Indication: BIPOLAR DISORDER
     Dosage: 100-200 MG
     Route: 048
     Dates: start: 19970101
  3. SEROQUEL [Suspect]
     Dosage: 25 MG, TWICE A DAY, 100 MG ONE HALF TABLET TWICE A DAY
     Route: 048
     Dates: start: 19980203
  4. SEROQUEL [Suspect]
     Dosage: 25 MG, TWICE A DAY, 100 MG ONE HALF TABLET TWICE A DAY
     Route: 048
     Dates: start: 19980203
  5. SEROQUEL [Suspect]
     Route: 048
     Dates: start: 20080901
  6. SEROQUEL [Suspect]
     Route: 048
     Dates: start: 20080901
  7. CLOZARIL [Concomitant]
     Route: 048
  8. HALDOL [Concomitant]
  9. RISPERDAL [Concomitant]
     Route: 048
  10. ZIPRASIDONE HCL [Concomitant]
     Route: 048
     Dates: start: 20060705
  11. ISOSORBIDE [Concomitant]
     Indication: ANGINA PECTORIS
     Route: 048
     Dates: start: 20070723
  12. SIMVASTATIN [Concomitant]
     Indication: HYPERCHOLESTEROLAEMIA
     Dosage: 40 MG ONE HALF TABLET EVERY EVENING
     Route: 048
     Dates: start: 20070723
  13. CLONAZEPAM [Concomitant]
     Indication: POSTPARTUM DEPRESSION
     Dosage: 0.5 MG TWICE A DAY AS NEEDED
     Route: 048
     Dates: start: 20060117
  14. CLONAZEPAM [Concomitant]
     Indication: ATTENTION DEFICIT/HYPERACTIVITY DISORDER
     Dosage: 0.5 MG TWICE A DAY AS NEEDED
     Route: 048
     Dates: start: 20060117
  15. BUPROPION HCL [Concomitant]
     Route: 048
     Dates: start: 20060912
  16. GABAPENTIN [Concomitant]
     Dosage: 400 MG EVERY MORNING, THREE CAPSULES AT BED TIME
     Route: 048
     Dates: start: 20030930
  17. LITHIUM CARBONATE [Concomitant]
     Dosage: 300 MG TWO CAPSULES EVERY MORNING, THREE CAPSULES EVERY MORNING
     Route: 048
     Dates: start: 20030930
  18. OLANZAPINE [Concomitant]
     Dosage: 20 MG ONE HALF, EVERY DAY
     Route: 048
     Dates: start: 20011010
  19. MIRTAZAPINE [Concomitant]
     Route: 048
     Dates: start: 20001020

REACTIONS (5)
  - DIABETES MELLITUS [None]
  - DIABETES MELLITUS INADEQUATE CONTROL [None]
  - HYPERGLYCAEMIA [None]
  - TYPE 1 DIABETES MELLITUS [None]
  - TYPE 2 DIABETES MELLITUS [None]
